FAERS Safety Report 7314679-8 (Version None)
Quarter: 2011Q1

REPORT INFORMATION
  Report Type: 
  Country: None (occurrence: None)
  Receive Date: 20110225
  Receipt Date: 20101201
  Transmission Date: 20110831
  Serious: No
  Sender: FDA-Public Use
  Company Number: US-MYLANLABS-2010S1020400

PATIENT
  Age: 15 Year
  Sex: Female

DRUGS (6)
  1. LACTAID [Concomitant]
  2. AMNESTEEM [Suspect]
     Indication: ACNE
     Route: 062
     Dates: start: 20100802, end: 20101004
  3. ALBUTEROL [Concomitant]
  4. MOTRIN [Concomitant]
  5. MULTI-VITAMIN [Concomitant]
  6. AMNESTEEM [Suspect]
     Route: 062
     Dates: start: 20101004, end: 20101030

REACTIONS (5)
  - LIPIDS INCREASED [None]
  - OROPHARYNGEAL PAIN [None]
  - FATIGUE [None]
  - BACK PAIN [None]
  - RHINORRHOEA [None]
